FAERS Safety Report 7121795-2 (Version None)
Quarter: 2010Q4

REPORT INFORMATION
  Report Type: 
  Country: None (occurrence: None)
  Receive Date: 20101124
  Receipt Date: 20101027
  Transmission Date: 20110411
  Serious: Yes (Hospitalization, Other)
  Sender: FDA-Public Use
  Company Number: US-AMGEN-USASP2010002474

PATIENT

DRUGS (5)
  1. PROCRIT [Suspect]
     Indication: PRODUCT USED FOR UNKNOWN INDICATION
     Dosage: 4000 UNIT, QWK
     Route: 058
     Dates: start: 19980101, end: 20100901
  2. SODIUM BICARBONATE [Concomitant]
     Indication: NEPHROPATHY
     Dosage: 650 MG, QD
     Route: 048
     Dates: start: 19950101
  3. SYNTHROID [Concomitant]
     Dosage: 125 A?G, QD
     Route: 048
     Dates: start: 19950101
  4. LISINOPRIL [Concomitant]
     Dosage: 10 MG, TID
     Route: 048
     Dates: start: 19950101
  5. CELLCEPT [Concomitant]
     Dosage: 500 MG, QD
     Route: 048
     Dates: start: 19950101

REACTIONS (7)
  - ANAL FISSURE [None]
  - DIARRHOEA [None]
  - FATIGUE [None]
  - HAEMATOCRIT DECREASED [None]
  - HAEMOGLOBIN DECREASED [None]
  - PALPITATIONS [None]
  - WHITE BLOOD CELL COUNT DECREASED [None]
